FAERS Safety Report 15058486 (Version 1)
Quarter: 2018Q2

REPORT INFORMATION
  Report Type: Spontaneous
  Country: US (occurrence: US)
  Receive Date: 20180625
  Receipt Date: 20180625
  Transmission Date: 20180711
  Serious: Yes (Hospitalization, Other)
  Sender: FDA-Public Use
  Company Number: US-AUROBINDO-AUR-APL-2018-031797

PATIENT
  Age: 66 Year
  Sex: Female

DRUGS (4)
  1. DANTROLENE. [Suspect]
     Active Substance: DANTROLENE SODIUM
     Indication: PRODUCT USED FOR UNKNOWN INDICATION
     Dosage: UNK
     Route: 065
  2. OLANZAPINE. [Suspect]
     Active Substance: OLANZAPINE
     Indication: BIPOLAR DISORDER
     Dosage: 10 MILLIGRAM, DAILY
     Route: 065
  3. RISPERIDONE. [Suspect]
     Active Substance: RISPERIDONE
     Indication: BIPOLAR DISORDER
     Dosage: UNK
     Route: 065
  4. OLANZAPINE. [Suspect]
     Active Substance: OLANZAPINE
     Dosage: 20 MILLIGRAM, DAILY
     Route: 065

REACTIONS (21)
  - Insomnia [Recovered/Resolved]
  - Urinary tract infection [Recovered/Resolved]
  - Confusional state [Recovered/Resolved]
  - Tachycardia [Recovered/Resolved]
  - Tachypnoea [Recovered/Resolved]
  - Restlessness [Recovered/Resolved]
  - Catatonia [Recovered/Resolved]
  - Micturition urgency [Recovered/Resolved]
  - Muscle rigidity [Recovered/Resolved]
  - Pyrexia [Recovered/Resolved]
  - Agitation [Recovered/Resolved]
  - Delirium [Recovered/Resolved]
  - Disease progression [Recovered/Resolved]
  - Hallucination, visual [Recovered/Resolved]
  - Stupor [Recovered/Resolved]
  - Neuroleptic malignant syndrome [Recovered/Resolved]
  - Verbigeration [Recovered/Resolved]
  - Mental status changes [Recovered/Resolved]
  - Blood pressure increased [Recovered/Resolved]
  - Speech disorder [Recovered/Resolved]
  - Hypokinesia [Recovered/Resolved]
